FAERS Safety Report 23084455 (Version 1)
Quarter: 2023Q4

REPORT INFORMATION
  Report Type: Report from Study
  Country: DE (occurrence: DE)
  Receive Date: 20231019
  Receipt Date: 20231019
  Transmission Date: 20240110
  Serious: Yes (Hospitalization, Other)
  Sender: FDA-Public Use
  Company Number: DE-EMA-DD-20230927-7180171-122322

PATIENT
  Age: 67 Year
  Sex: Female
  Weight: 61 kg

DRUGS (6)
  1. ETORICOXIB [Suspect]
     Active Substance: ETORICOXIB
     Indication: Metastatic malignant melanoma
     Dosage: 60 MILLIGRAM
     Dates: start: 20200103, end: 20200902
  2. PIOGLITAZONE HYDROCHLORIDE [Suspect]
     Active Substance: PIOGLITAZONE HYDROCHLORIDE
     Indication: Metastatic malignant melanoma
     Dosage: 60 MILLIGRAM
     Dates: start: 20200103, end: 20200320
  3. PEMBROLIZUMAB [Suspect]
     Active Substance: PEMBROLIZUMAB
     Indication: Metastatic malignant melanoma
     Dates: start: 20200921, end: 20200921
  4. TROFOSFAMIDE [Suspect]
     Active Substance: TROFOSFAMIDE
     Indication: Metastatic malignant melanoma
     Dosage: 150 MILLIGRAM
     Dates: start: 20200103, end: 20200902
  5. DACARBAZINE [Suspect]
     Active Substance: DACARBAZINE
     Indication: Malignant melanoma
     Dosage: UNK
     Route: 065
  6. TEMSIROLIMUS [Suspect]
     Active Substance: TEMSIROLIMUS
     Indication: Metastatic malignant melanoma
     Dosage: 25 MILLIGRAM
     Dates: start: 20200103, end: 20200320

REACTIONS (2)
  - Acute kidney injury [Not Recovered/Not Resolved]
  - Hyperuricaemia [Unknown]

NARRATIVE: CASE EVENT DATE: 20200928
